FAERS Safety Report 6144755-7 (Version None)
Quarter: 2009Q2

REPORT INFORMATION
  Report Type: 
  Country: None (occurrence: None)
  Receive Date: 20090402
  Receipt Date: 20090220
  Transmission Date: 20091009
  Serious: No
  Sender: FDA-Public Use
  Company Number: 1000004610

PATIENT
  Age: 69 Year
  Sex: Female
  Weight: 86.1834 kg

DRUGS (8)
  1. BYSTOLIC [Suspect]
     Indication: HYPERTENSION
     Dosage: 5 MG (5 MG, 1 IN 1 D),ORAL;  2.5 MG (2.5 MG 1 IN 1 D),ORAL
     Route: 048
     Dates: start: 20081010, end: 20081001
  2. BYSTOLIC [Suspect]
     Indication: HYPERTENSION
     Dosage: 5 MG (5 MG, 1 IN 1 D),ORAL;  2.5 MG (2.5 MG 1 IN 1 D),ORAL
     Route: 048
     Dates: start: 20081001, end: 20081105
  3. COZAAR [Concomitant]
  4. NIFEDIPINE [Concomitant]
  5. GEMFIBROZIL [Concomitant]
  6. SPIRONOLACTONE [Concomitant]
  7. FUROSEMIDE [Concomitant]
  8. TRAZODONE HCL [Concomitant]

REACTIONS (2)
  - ANXIETY [None]
  - FEELING JITTERY [None]
